FAERS Safety Report 12898314 (Version 1)
Quarter: 2016Q4

REPORT INFORMATION
  Report Type: Spontaneous
  Country: IL (occurrence: IL)
  Receive Date: 20161031
  Receipt Date: 20161031
  Transmission Date: 20170207
  Serious: Yes (Other)
  Sender: FDA-Public Use
  Company Number: IL-TEVA-706661ACC

PATIENT
  Sex: Female

DRUGS (1)
  1. SEASONIQUE [Suspect]
     Active Substance: ETHINYL ESTRADIOL\LEVONORGESTREL

REACTIONS (5)
  - Abortion induced [Unknown]
  - Exposure during pregnancy [Unknown]
  - Complication of pregnancy [Unknown]
  - Pregnancy on contraceptive [Unknown]
  - Vaginal haemorrhage [Unknown]
